FAERS Safety Report 9262321 (Version 1)
Quarter: 2013Q2

REPORT INFORMATION
  Report Type: Spontaneous
  Country: US (occurrence: US)
  Receive Date: 20130430
  Receipt Date: 20130430
  Transmission Date: 20140414
  Serious: Yes (Life-Threatening, Hospitalization)
  Sender: FDA-Public Use
  Company Number: US-SUN PHARMACEUTICAL INDUSTRIES LTD-2013SUN00535

PATIENT
  Age: 14 Year
  Sex: Female

DRUGS (2)
  1. BUPROPION HYDROCHLORIDE EXTENDED-RELEASE TABLETS, USP (SR) 100MG [Suspect]
     Indication: BIPOLAR DISORDER
     Route: 065
  2. LAMOTRIGINE TABLETS 25MG [Suspect]
     Indication: BIPOLAR DISORDER
     Route: 065

REACTIONS (10)
  - Drug reaction with eosinophilia and systemic symptoms [Recovering/Resolving]
  - Cardiac arrest [None]
  - Renal failure acute [None]
  - Tubulointerstitial nephritis [None]
  - Respiratory distress [None]
  - Torsade de pointes [None]
  - Respiratory failure [None]
  - Pancreatitis [None]
  - Anaemia [None]
  - Thyroiditis [None]
